FAERS Safety Report 23263840 (Version 1)
Quarter: 2023Q4

REPORT INFORMATION
  Report Type: Spontaneous
  Country: US (occurrence: None)
  Receive Date: 20231205
  Receipt Date: 20231205
  Transmission Date: 20240109
  Serious: Yes (Hospitalization)
  Sender: FDA-Public Use
  Company Number: None

PATIENT
  Age: 76 Year
  Sex: Male
  Weight: 51 kg

DRUGS (1)
  1. SCOPOLAMINE [Suspect]
     Active Substance: SCOPOLAMINE
     Dosage: 1 UNIT OTHER TOP
     Route: 061
     Dates: start: 20231120, end: 20231122

REACTIONS (5)
  - Anxiety [None]
  - Delirium [None]
  - Hallucination [None]
  - Abnormal behaviour [None]
  - Insomnia [None]

NARRATIVE: CASE EVENT DATE: 20231122
